FAERS Safety Report 15713977 (Version 2)
Quarter: 2020Q4

REPORT INFORMATION
  Report Type: Spontaneous
  Country: US (occurrence: US)
  Receive Date: 20181212
  Receipt Date: 20201214
  Transmission Date: 20210113
  Serious: No
  Sender: FDA-Public Use
  Company Number: US-ENDO PHARMACEUTICALS INC-2018-041275

PATIENT
  Age: 71 Year
  Sex: Male
  Weight: 81.63 kg

DRUGS (3)
  1. TESTIM [Suspect]
     Active Substance: TESTOSTERONE
     Indication: HYPOGONADISM
     Dosage: 50 MG, DAILY (ONE TUBE)
     Route: 061
     Dates: start: 20180817
  2. TESTIM [Suspect]
     Active Substance: TESTOSTERONE
     Dosage: 100 MG, (TWO TUBES)
     Route: 061
     Dates: start: 2018
  3. ZYRTEC [Concomitant]
     Active Substance: CETIRIZINE HYDROCHLORIDE
     Indication: DUST ALLERGY

REACTIONS (7)
  - Wrong technique in product usage process [Unknown]
  - Intentional dose omission [Unknown]
  - Product packaging issue [Not Recovered/Not Resolved]
  - Product physical issue [Not Recovered/Not Resolved]
  - Incorrect dose administered [Unknown]
  - Product quality issue [Not Recovered/Not Resolved]
  - Discomfort [Not Recovered/Not Resolved]

NARRATIVE: CASE EVENT DATE: 2018
